FAERS Safety Report 9518960 (Version 1)
Quarter: 2013Q1

REPORT INFORMATION
  Report Type: Spontaneous
  Country: US (occurrence: None)
  Receive Date: 20130305
  Receipt Date: 20130305
  Transmission Date: 20140127
  Serious: Yes (Other)
  Sender: FDA-Public Use
  Company Number: 163-21880-12100308

PATIENT
  Age: 81 Year
  Sex: Male

DRUGS (6)
  1. REVLIMID (LENALIDOMIDE) (CAPSULES) [Suspect]
     Route: 048
     Dates: start: 20120814
  2. BUSPIRONE HCL(BUSPIRONE HYDROCHLORIDE)(UNKNOWN) [Concomitant]
  3. KLONOPIN(CLONAZEPAM)(UNKNOWN) [Concomitant]
  4. XANAX(ALPRAZOLAM)(UNKNOWN) [Concomitant]
  5. COQ-10(UBIDECARENONE)(UNKNOWN) [Concomitant]
  6. ASTEPRO(AZELASTINE HYDROCHLORIDE)(UNKNOWN) [Concomitant]

REACTIONS (5)
  - Anxiety [None]
  - Confusional state [None]
  - Diarrhoea [None]
  - Upper respiratory tract infection [None]
  - Fatigue [None]
